FAERS Safety Report 9201981 (Version 1)
Quarter: 2013Q1

REPORT INFORMATION
  Report Type: Spontaneous
  Country: US (occurrence: None)
  Receive Date: 20130328
  Receipt Date: 20130328
  Transmission Date: 20140127
  Serious: Yes (Other)
  Sender: FDA-Public Use
  Company Number: US-11972268

PATIENT
  Sex: Male

DRUGS (3)
  1. DUREZOL [Suspect]
     Indication: UVEITIS
     Dosage: 1 DROP DAILY OU (EACH EYE) OPHTHALMIC
  2. AUGMENTIN [Concomitant]
  3. ANTIEMETICS AND ANTINAUSEANTS [Concomitant]
     Dates: start: 201210

REACTIONS (4)
  - Cellulitis [None]
  - Nausea [None]
  - Pyrexia [None]
  - Headache [None]
